FAERS Safety Report 19959264 (Version 1)
Quarter: 2021Q4

REPORT INFORMATION
  Report Type: Spontaneous
  Country: US (occurrence: US)
  Receive Date: 20211014
  Receipt Date: 20211014
  Transmission Date: 20220303
  Serious: Yes (Other)
  Sender: FDA-Public Use
  Company Number: None

PATIENT
  Age: 35 Year
  Sex: Female
  Weight: 55 kg

DRUGS (2)
  1. ZAFEMY [Suspect]
     Active Substance: ETHINYL ESTRADIOL\NORELGESTROMIN
     Indication: Contraception
     Dosage: ?          QUANTITY:3 PATCH(ES);OTHER FREQUENCY:ONCE A WEEK;
     Route: 062
     Dates: start: 20210712, end: 20211010
  2. ZAFEMY [Suspect]
     Active Substance: ETHINYL ESTRADIOL\NORELGESTROMIN
     Indication: Menstruation irregular

REACTIONS (4)
  - Product substitution issue [None]
  - Product adhesion issue [None]
  - Nausea [None]
  - Dysmenorrhoea [None]

NARRATIVE: CASE EVENT DATE: 19850924
